FAERS Safety Report 18104329 (Version 2)
Quarter: 2022Q3

REPORT INFORMATION
  Report Type: Spontaneous
  Country: US (occurrence: US)
  Receive Date: 20200803
  Receipt Date: 20220921
  Transmission Date: 20221026
  Serious: No
  Sender: FDA-Public Use
  Company Number: US-JNJFOC-20200801209

PATIENT
  Age: 6 Year
  Sex: Male

DRUGS (2)
  1. RISPERDAL [Suspect]
     Active Substance: RISPERIDONE
     Indication: Attention deficit hyperactivity disorder
     Route: 048
     Dates: start: 2006, end: 20100909
  2. RISPERIDONE [Suspect]
     Active Substance: RISPERIDONE
     Indication: Product used for unknown indication
     Route: 065

REACTIONS (5)
  - Obesity [Unknown]
  - Emotional disorder [Unknown]
  - Increased appetite [Unknown]
  - Gynaecomastia [Unknown]
  - Off label use [Unknown]

NARRATIVE: CASE EVENT DATE: 20060101
